FAERS Safety Report 6380437-4 (Version None)
Quarter: 2009Q3

REPORT INFORMATION
  Report Type: 
  Country: None (occurrence: None)
  Receive Date: 20090924
  Receipt Date: 20090908
  Transmission Date: 20100115
  Serious: Yes (Hospitalization)
  Sender: FDA-Public Use
  Company Number: 001683

PATIENT
  Age: 50 Year
  Sex: Female

DRUGS (3)
  1. LACOSAMIDE [Suspect]
     Indication: CONVULSION
     Dosage: ORAL
     Route: 048
     Dates: start: 20090901, end: 20090901
  2. TEGRETOL [Concomitant]
  3. ZONEGRAN [Concomitant]

REACTIONS (1)
  - PSYCHOTIC DISORDER [None]
